FAERS Safety Report 21163569 (Version 4)
Quarter: 2023Q1

REPORT INFORMATION
  Report Type: Report from Study
  Country: CA (occurrence: CA)
  Receive Date: 20220802
  Receipt Date: 20230209
  Transmission Date: 20230417
  Serious: Yes (Other)
  Sender: FDA-Public Use
  Company Number: CA-JNJFOC-20220754128

PATIENT
  Sex: Female

DRUGS (4)
  1. SIMPONI [Suspect]
     Active Substance: GOLIMUMAB
     Indication: Rheumatoid arthritis
     Route: 058
     Dates: start: 20220530
  2. PREDNISONE [Concomitant]
     Active Substance: PREDNISONE
  3. FLUTICASONE PROPIONATE [Concomitant]
     Active Substance: FLUTICASONE PROPIONATE
  4. COVID-19 VACCINE [Concomitant]
     Indication: Immunisation

REACTIONS (4)
  - Pneumonia [Unknown]
  - Sinusitis [Unknown]
  - Pulmonary mass [Not Recovered/Not Resolved]
  - Therapy cessation [Unknown]
